FAERS Safety Report 4649416-9 (Version None)
Quarter: 2005Q2

REPORT INFORMATION
  Report Type: 
  Country: None (occurrence: None)
  Receive Date: 20050428
  Receipt Date: 20050428
  Transmission Date: 20051028
  Serious: No
  Sender: FDA-Public Use
  Company Number: None

PATIENT
  Age: 59 Year
  Sex: Male
  Weight: 79 kg

DRUGS (9)
  1. BACTRIM [Suspect]
     Indication: PNEUMOCYSTIS JIROVECI PNEUMONIA
     Dosage: 25 ML IN D5W IV
     Route: 042
     Dates: start: 20050120, end: 20050130
  2. PREDNISONE TAB [Concomitant]
  3. OMEPRAZOLE [Concomitant]
  4. ROCEPHIN [Concomitant]
  5. AZITHROMYCIN [Concomitant]
  6. OLANZAPINE [Concomitant]
  7. TRAMADOL HCL [Concomitant]
  8. ETODOLAC [Concomitant]
  9. AMITRIPTYLINE HCL TAB [Concomitant]

REACTIONS (2)
  - HYPERKALAEMIA [None]
  - RENAL FAILURE [None]
